FAERS Safety Report 5812178-3 (Version None)
Quarter: 2008Q3

REPORT INFORMATION
  Report Type: 
  Country: None (occurrence: None)
  Receive Date: 20080716
  Receipt Date: 20080708
  Transmission Date: 20090109
  Serious: Yes (Hospitalization)
  Sender: FDA-Public Use
  Company Number: US-GENENTECH-264387

PATIENT
  Age: 54 Year
  Sex: Female

DRUGS (13)
  1. BEVACIZUMAB [Suspect]
     Indication: CERVIX CARCINOMA
     Dosage: 15 MG/KG, UNK
     Route: 042
     Dates: start: 20080408
  2. CISPLATIN [Concomitant]
     Indication: CERVIX CARCINOMA
     Dosage: 50 MG/M2, UNK
     Route: 042
     Dates: start: 20080408
  3. TOPOTECAN [Concomitant]
     Indication: CERVIX CARCINOMA
     Dosage: 0.75 MG/M2, UNK
     Route: 042
     Dates: start: 20080408
  4. DILAUDID [Concomitant]
     Indication: PAIN
     Dosage: 0.5 MG, UNK
     Route: 042
  5. EFFEXOR XR [Concomitant]
     Indication: DEPRESSION
     Dosage: 75 MG, TID
  6. OXYCODONE HCL [Concomitant]
     Indication: PAIN
     Dosage: 20 MG, PRN
  7. OXYCONTIN [Concomitant]
     Indication: PAIN
     Dosage: 20 MG, PRN
  8. PERCOCET [Concomitant]
     Indication: PAIN
     Dosage: UNK
  9. SEROQUEL [Concomitant]
     Indication: DRUG USE FOR UNKNOWN INDICATION
     Dosage: 200 MG, QHS
  10. SEROQUEL [Concomitant]
     Dosage: 100 MG, QAM
  11. VITAMIN B6 [Concomitant]
     Indication: DRUG USE FOR UNKNOWN INDICATION
     Dosage: UNK
  12. VITAMIN E [Concomitant]
     Indication: DRUG USE FOR UNKNOWN INDICATION
     Dosage: UNK
  13. ZOFRAN [Concomitant]
     Indication: DRUG USE FOR UNKNOWN INDICATION
     Dosage: 8 MG, PRN

REACTIONS (1)
  - RENAL FAILURE [None]
